FAERS Safety Report 4974875-1 (Version None)
Quarter: 2006Q1

REPORT INFORMATION
  Report Type: 
  Country: None (occurrence: None)
  Receive Date: 20060227
  Receipt Date: 20051128
  Transmission Date: 20060701
  Serious: No
  Sender: FDA-Public Use
  Company Number: PHEH2005US12238

PATIENT
  Age: 89 Year
  Sex: Female
  Weight: 63.9 kg

DRUGS (9)
  1. ENABLEX [Suspect]
     Indication: HYPERTONIC BLADDER
     Dosage: 7.5 MG QD
     Dates: start: 20050815, end: 20050829
  2. ENABLEX [Suspect]
     Indication: HYPERTONIC BLADDER
     Dosage: 7.5 MG QD
     Dates: start: 20051031
  3. ULTRACET [Suspect]
     Dates: start: 20050901, end: 20051001
  4. HYZAAR (HYDROCHLORIDE, LOSARTAN POTASSIUM) [Concomitant]
  5. METOPROLOL SUCCINATE [Concomitant]
  6. TRICOR [Concomitant]
  7. SYNTHROID [Concomitant]
  8. NORVASC /DEN/(AMLODIPINE BESILATE) [Concomitant]
  9. BUMEX [Concomitant]

REACTIONS (6)
  - DRY MOUTH [None]
  - DYSPNOEA [None]
  - HEADACHE [None]
  - PRURITUS GENERALISED [None]
  - URINARY INCONTINENCE [None]
  - VISION BLURRED [None]
